FAERS Safety Report 7650059-3 (Version None)
Quarter: 2011Q3

REPORT INFORMATION
  Report Type: 
  Country: None (occurrence: None)
  Receive Date: 20110802
  Receipt Date: 20110802
  Transmission Date: 20111222
  Serious: Yes (Other)
  Sender: FDA-Public Use
  Company Number: None

PATIENT
  Sex: Female

DRUGS (4)
  1. BUPROPION HCL [Concomitant]
     Route: 048
  2. CLONAZEPAM [Concomitant]
     Route: 048
  3. LAMOTRIGINE [Suspect]
     Indication: MAJOR DEPRESSION
     Dates: start: 20110509, end: 20110611
  4. LAMOTRIGINE [Suspect]
     Indication: DISEASE RECURRENCE
     Dates: start: 20110509, end: 20110611

REACTIONS (6)
  - ANXIETY [None]
  - SUICIDAL IDEATION [None]
  - DRUG INEFFECTIVE [None]
  - AFFECTIVE DISORDER [None]
  - PRODUCT SUBSTITUTION ISSUE [None]
  - CONDITION AGGRAVATED [None]
